FAERS Safety Report 7396242-6 (Version None)
Quarter: 2011Q2

REPORT INFORMATION
  Report Type: 
  Country: None (occurrence: None)
  Receive Date: 20110406
  Receipt Date: 20110324
  Transmission Date: 20111010
  Serious: Yes (Death, Other)
  Sender: FDA-Public Use
  Company Number: DE-CELGENEUS-062-50794-10080718

PATIENT
  Age: 62 Year
  Sex: Male
  Weight: 127 kg

DRUGS (11)
  1. PANTOPRAZOLE SODIUM [Concomitant]
     Dosage: 40 MILLIGRAM
     Route: 065
     Dates: start: 20100204, end: 20100310
  2. ESIDRIX [Concomitant]
     Dosage: 2.5 MILLIGRAM
     Route: 065
     Dates: start: 20100203, end: 20100215
  3. DELIX [Concomitant]
     Dosage: 2.5 MILLIGRAM
     Route: 065
     Dates: start: 20100129, end: 20100216
  4. AMPHOTERICIN B [Concomitant]
     Dosage: 160 MILLIGRAM
     Route: 065
     Dates: start: 20100129
  5. TAVANIC [Concomitant]
     Dosage: 500 MILLIGRAM
     Route: 065
     Dates: start: 20100201, end: 20100216
  6. ALLOPURINOL [Concomitant]
     Dosage: 300 MILLIGRAM
     Route: 065
     Dates: start: 20100202, end: 20100215
  7. LASIX [Concomitant]
     Dosage: 80 MILLIGRAM
     Route: 065
     Dates: start: 20100129, end: 20100224
  8. VIDAZA [Suspect]
     Dosage: 243.9 MILLIGRAM
     Route: 058
     Dates: start: 20100211, end: 20100215
  9. IDARUBICIN HCL [Concomitant]
     Dosage: 12 MILLIGRAM/SQ. METER
     Route: 065
     Dates: start: 20100206, end: 20100212
  10. ETOPOSIDE [Concomitant]
     Dosage: 100 MILLIGRAM/SQ. METER
     Route: 065
     Dates: start: 20100206, end: 20100210
  11. AMLODIPINE [Concomitant]
     Dosage: 5 MILLIGRAM
     Route: 065
     Dates: start: 20100129, end: 20100215

REACTIONS (3)
  - RESPIRATORY FAILURE [None]
  - INFECTION [None]
  - BONE MARROW FAILURE [None]
